FAERS Safety Report 9815029 (Version 1)
Quarter: 2014Q1

REPORT INFORMATION
  Report Type: Spontaneous
  Country: US (occurrence: US)
  Receive Date: 20140114
  Receipt Date: 20140114
  Transmission Date: 20141002
  Serious: Yes (Other)
  Sender: FDA-Public Use
  Company Number: US-AMGEN-USASP2014001480

PATIENT
  Age: 64 Year
  Sex: Female

DRUGS (1)
  1. ENBREL [Suspect]
     Indication: RHEUMATOID ARTHRITIS
     Dosage: 50 MG, QWK
     Route: 065
     Dates: start: 20080611

REACTIONS (5)
  - Spinal column stenosis [Not Recovered/Not Resolved]
  - Calcinosis [Not Recovered/Not Resolved]
  - Exostosis [Not Recovered/Not Resolved]
  - Tooth disorder [Recovered/Resolved]
  - Injection site pain [Not Recovered/Not Resolved]
